FAERS Safety Report 23358767 (Version 1)
Quarter: 2024Q1

REPORT INFORMATION
  Report Type: Spontaneous
  Country: US (occurrence: US)
  Receive Date: 20240102
  Receipt Date: 20240102
  Transmission Date: 20240410
  Serious: Yes (Other)
  Sender: FDA-Public Use
  Company Number: US-BEH-2024166966

PATIENT
  Sex: Male

DRUGS (1)
  1. HUMATE-P [Suspect]
     Active Substance: HUMAN COAGULATION FACTOR VIII/VON WILLEBRAND FACTOR COMPLEX
     Indication: Von Willebrand^s disease
     Dosage: 5796 INTERNATIONAL UNIT, QOD
     Route: 042
     Dates: start: 20210529

REACTIONS (3)
  - Haemorrhage [Unknown]
  - No adverse event [Unknown]
  - Product dose omission issue [Unknown]
